FAERS Safety Report 5253742-2 (Version None)
Quarter: 2007Q1

REPORT INFORMATION
  Report Type: 
  Country: None (occurrence: None)
  Receive Date: 20070227
  Receipt Date: 20070213
  Transmission Date: 20070707
  Serious: Yes (Hospitalization)
  Sender: FDA-Public Use
  Company Number: US-CVT-070060

PATIENT
  Age: 72 Year
  Sex: Male

DRUGS (2)
  1. RANEXA [Suspect]
     Indication: ANGINA PECTORIS
  2. ANGIOTENSIN II ANTAGONISTS [Concomitant]

REACTIONS (2)
  - HYPOVOLAEMIA [None]
  - NEPHRITIS ALLERGIC [None]
